FAERS Safety Report 5879477-0 (Version None)
Quarter: 2008Q3

REPORT INFORMATION
  Report Type: 
  Country: None (occurrence: None)
  Receive Date: 20080911
  Receipt Date: 20080911
  Transmission Date: 20090109
  Serious: No
  Sender: FDA-Public Use
  Company Number: None

PATIENT
  Age: 58 Year
  Sex: Male
  Weight: 95.2554 kg

DRUGS (1)
  1. BENICAR HCT [Suspect]
     Indication: HYPERTENSION
     Dosage: 1 TAB DAILY INJ
     Dates: start: 20080510, end: 20080909

REACTIONS (4)
  - ABASIA [None]
  - BACK PAIN [None]
  - IMPAIRED WORK ABILITY [None]
  - MYALGIA [None]
